FAERS Safety Report 9909101 (Version 3)
Quarter: 2014Q1

REPORT INFORMATION
  Report Type: Report from Study
  Country: GB (occurrence: GB)
  Receive Date: 20140219
  Receipt Date: 20140331
  Transmission Date: 20141002
  Serious: Yes (Hospitalization)
  Sender: FDA-Public Use
  Company Number: GB-009507513-1304GBR000586

PATIENT
  Age: 70 Year
  Sex: Female
  Weight: 48 kg

DRUGS (6)
  1. MK-0000 (281) [Suspect]
     Dosage: UNK
  2. ALENDRONATE SODIUM [Suspect]
     Indication: OSTEOPOROSIS
     Dosage: UNK
     Route: 048
     Dates: start: 20100910, end: 20110816
  3. ADCAL-D3 [Suspect]
     Indication: OSTEOPOROSIS
     Dosage: UNK, QD
     Dates: start: 20100910
  4. CYCLOPHOSPHAMIDE (+) DACARBAZINE (+) DACTINOMYCIN (+) DOXORUBICIN [Concomitant]
     Indication: OSTEOPOROSIS
     Dosage: MONTHLY
     Dates: start: 20111019
  5. OMEPRAZOLE [Concomitant]
     Indication: GASTROINTESTINAL DISORDER
     Dosage: UNK, QD
     Dates: start: 20100913
  6. IBANDRONIC ACID [Concomitant]
     Indication: OSTEOPOROSIS
     Dosage: UNK UNK, QM
     Dates: start: 20111019, end: 20130521

REACTIONS (4)
  - Spinal fracture [Unknown]
  - Spinal fracture [Not Recovered/Not Resolved]
  - Dyspepsia [Not Recovered/Not Resolved]
  - Grief reaction [Not Recovered/Not Resolved]
